FAERS Safety Report 10265847 (Version 1)
Quarter: 2014Q2

REPORT INFORMATION
  Report Type: Spontaneous
  Country: CH (occurrence: CH)
  Receive Date: 20140627
  Receipt Date: 20140627
  Transmission Date: 20141212
  Serious: Yes (Life-Threatening, Hospitalization)
  Sender: FDA-Public Use
  Company Number: CH-GLAXOSMITHKLINE-B1008580A

PATIENT
  Age: 7 Year
  Sex: Male

DRUGS (5)
  1. ZINNAT [Suspect]
     Indication: OTITIS MEDIA
     Route: 048
     Dates: start: 20140530, end: 20140530
  2. IBUPROFEN [Suspect]
     Indication: OTITIS MEDIA
     Dosage: 20MGML UNKNOWN
     Route: 048
     Dates: start: 20140530, end: 20140531
  3. ORFIRIL [Concomitant]
     Indication: COMPLEX PARTIAL SEIZURES
     Dosage: 180MG TWICE PER DAY
     Route: 048
  4. LOPIRIN [Concomitant]
     Indication: HYPOPLASTIC LEFT HEART SYNDROME
     Dosage: 3MG THREE TIMES PER DAY
     Route: 048
  5. ASPIRIN CARDIO [Concomitant]
     Indication: HYPOPLASTIC LEFT HEART SYNDROME
     Dosage: 100MG PER DAY
     Route: 048

REACTIONS (7)
  - Anaphylactic reaction [Recovered/Resolved]
  - Dyspnoea [Recovered/Resolved]
  - Urticaria [Recovered/Resolved]
  - Angioedema [Recovered/Resolved]
  - Bronchospasm [Recovered/Resolved]
  - Tachycardia [Recovered/Resolved]
  - Vomiting [Recovered/Resolved]
